FAERS Safety Report 22669681 (Version 2)
Quarter: 2023Q4

REPORT INFORMATION
  Report Type: Spontaneous
  Country: FR (occurrence: FR)
  Receive Date: 20230704
  Receipt Date: 20231003
  Transmission Date: 20240110
  Serious: Yes (Hospitalization)
  Sender: FDA-Public Use
  Company Number: None

PATIENT
  Age: 59 Year
  Sex: Female

DRUGS (17)
  1. DEXAMETHASONE [Suspect]
     Active Substance: DEXAMETHASONE
     Indication: Prophylaxis of nausea and vomiting
     Dosage: DOSAGE NOT GIVEN
     Route: 042
     Dates: start: 20230522, end: 20230522
  2. SEVOFLURANE [Suspect]
     Active Substance: SEVOFLURANE
     Indication: Anaesthesia
     Dosage: DOSAGE NOT GIVEN
     Route: 042
     Dates: start: 20230522, end: 20230522
  3. ROPIVACAINE HYDROCHLORIDE [Suspect]
     Active Substance: ROPIVACAINE HYDROCHLORIDE
     Indication: Anaesthesia
     Dosage: DOSAGE NOT GIVEN
     Route: 042
     Dates: start: 20230522, end: 20230522
  4. ONDANSETRON [Suspect]
     Active Substance: ONDANSETRON
     Indication: Antiemetic supportive care
     Dosage: DOSAGE NOT GIVEN
     Route: 042
     Dates: start: 20230523, end: 20230524
  5. ACUPAN [Suspect]
     Active Substance: NEFOPAM HYDROCHLORIDE
     Indication: Pain prophylaxis
     Dosage: SOLUTION INJECTABLE
     Route: 042
     Dates: start: 20230522, end: 20230523
  6. TRAMADOL HYDROCHLORIDE [Suspect]
     Active Substance: TRAMADOL HYDROCHLORIDE
     Indication: Pain prophylaxis
     Dosage: 100 MG/2 ML, SOLUTION INJECTABLE EN AMPOULE
     Route: 042
     Dates: start: 20230522, end: 20230522
  7. PERFALGAN [Suspect]
     Active Substance: ACETAMINOPHEN
     Indication: Antibiotic prophylaxis
     Dosage: 10 MG/ML, SOLUTION POUR PERFUSION
     Route: 042
     Dates: start: 20230522, end: 20230525
  8. PHLOROGLUCINOL [Suspect]
     Active Substance: PHLOROGLUCINOL
     Indication: Abdominal pain
     Dosage: DOSAGE NOT GIVEN
     Route: 042
     Dates: start: 20230523, end: 20230525
  9. PANTOPRAZOLE [Suspect]
     Active Substance: PANTOPRAZOLE
     Indication: Gastritis prophylaxis
     Dosage: DOSAGE NOT GIVEN
     Route: 042
     Dates: start: 20230522, end: 20230530
  10. NICARDIPINE HYDROCHLORIDE [Suspect]
     Active Substance: NICARDIPINE HYDROCHLORIDE
     Indication: Hypertension
     Dosage: DOSAGE NOT GIVEN
     Route: 042
     Dates: start: 20230523, end: 20230524
  11. PROPOFOL [Suspect]
     Active Substance: PROPOFOL
     Indication: Anaesthesia
     Dosage: DOSAGE NOT GIVEN
     Route: 042
     Dates: start: 20230522, end: 20230522
  12. SUFENTANIL [Suspect]
     Active Substance: SUFENTANIL
     Indication: Anaesthesia
     Dosage: DOSAGE NOT GIVEN
     Route: 042
     Dates: start: 20230522, end: 20230522
  13. KETAMINE [Suspect]
     Active Substance: KETAMINE
     Indication: Anaesthesia
     Dosage: DOSAGE NOT GIVEN
     Route: 042
     Dates: start: 20230522, end: 20230522
  14. ATRACURIUM [Suspect]
     Active Substance: ATRACURIUM
     Indication: Anaesthesia
     Dosage: DOSAGE NOT GIVEN
     Route: 042
     Dates: start: 20230522, end: 20230522
  15. LEVOFLOXACIN [Suspect]
     Active Substance: LEVOFLOXACIN
     Indication: Thrombosis prophylaxis
     Dosage: DOSAGE NOT GIVEN
     Route: 058
     Dates: start: 20230522, end: 20230601
  16. CEFAZOLIN [Suspect]
     Active Substance: CEFAZOLIN
     Indication: Antibiotic prophylaxis
     Dosage: DOSAGE NOT GIVEN
     Route: 042
     Dates: start: 20230522, end: 20230522
  17. ULTRAVIST [Suspect]
     Active Substance: IOPROMIDE
     Indication: Imaging procedure
     Dosage: 370 (370 MG D^IODE/ML), SOLUTION INJECTABLE
     Route: 042
     Dates: start: 20230524, end: 20230524

REACTIONS (1)
  - Acute generalised exanthematous pustulosis [Recovered/Resolved]

NARRATIVE: CASE EVENT DATE: 20230525
